FAERS Safety Report 9016801 (Version 2)
Quarter: 2013Q3

REPORT INFORMATION
  Report Type: Report from Study
  Country: MX (occurrence: MX)
  Receive Date: 20130117
  Receipt Date: 20130925
  Transmission Date: 20140515
  Serious: Yes (Other)
  Sender: FDA-Public Use
  Company Number: PHHY2011MX80045

PATIENT
  Age: 75 Year
  Sex: Female

DRUGS (3)
  1. DIOVAN [Suspect]
     Indication: HYPERTENSION
     Dosage: 160 MG, UKN
     Route: 048
  2. DIOVAN [Suspect]
     Dosage: 80 MG, DAILY
     Route: 048
  3. AKATINOL [Concomitant]
     Dosage: 1 DF, UNK
     Dates: start: 2010

REACTIONS (5)
  - Dementia Alzheimer^s type [Not Recovered/Not Resolved]
  - Amnesia [Not Recovered/Not Resolved]
  - Influenza [Recovered/Resolved]
  - Pyrexia [Recovered/Resolved]
  - Hypertension [Not Recovered/Not Resolved]
